FAERS Safety Report 5465693-9 (Version None)
Quarter: 2007Q3

REPORT INFORMATION
  Report Type: 
  Country: None (occurrence: None)
  Receive Date: 20070919
  Receipt Date: 20070919
  Transmission Date: 20080115
  Serious: No
  Sender: FDA-Public Use
  Company Number: None

PATIENT
  Age: 67 Year
  Sex: Female

DRUGS (1)
  1. NYSTATIN; TRIAMCINOLONE ACETONIDE [Suspect]
     Indication: RASH
     Dosage: APPLY AS DIRECTED AS NEEDED
     Dates: start: 20000101

REACTIONS (1)
  - PHARMACEUTICAL PRODUCT COMPLAINT [None]
